FAERS Safety Report 8087934-4 (Version None)
Quarter: 2012Q1

REPORT INFORMATION
  Report Type: 
  Country: None (occurrence: None)
  Receive Date: 20120130
  Receipt Date: 20120119
  Transmission Date: 20120608
  Serious: Yes (Hospitalization)
  Sender: FDA-Public Use
  Company Number: US-ASTRAZENECA-2012SE04214

PATIENT
  Age: 71 Year
  Sex: Female

DRUGS (1)
  1. TOPROL-XL [Suspect]
     Route: 048

REACTIONS (7)
  - RENAL FAILURE [None]
  - BACK PAIN [None]
  - DIARRHOEA [None]
  - HEADACHE [None]
  - DEHYDRATION [None]
  - FALL [None]
  - AMNESIA [None]
